FAERS Safety Report 12177930 (Version 1)
Quarter: 2016Q1

REPORT INFORMATION
  Report Type: Spontaneous
  Country: US (occurrence: None)
  Receive Date: 20160314
  Receipt Date: 20160314
  Transmission Date: 20160526
  Serious: Yes (Other)
  Sender: FDA-Public Use
  Company Number: None

PATIENT
  Age: 64 Year
  Sex: Female

DRUGS (1)
  1. RESTASIS [Suspect]
     Active Substance: CYCLOSPORINE
     Indication: DRY EYE
     Dosage: INSTILL 1 DROP IN BOTH EYES TWICE A DAY  BID OPHTHALMIC?2-3YEARS
     Route: 047

REACTIONS (3)
  - Drug ineffective [None]
  - Eye irritation [None]
  - Liquid product physical issue [None]

NARRATIVE: CASE EVENT DATE: 20160305
